FAERS Safety Report 8949679 (Version 2)
Quarter: 2015Q4

REPORT INFORMATION
  Report Type: Spontaneous
  Country: GB (occurrence: GB)
  Receive Date: 20121206
  Receipt Date: 20151211
  Transmission Date: 20160305
  Serious: Yes (Other)
  Sender: FDA-Public Use
  Company Number: GB-009507513-1109GBR00053

PATIENT
  Age: 32 Year
  Sex: Female

DRUGS (5)
  1. TRUVADA [Concomitant]
     Active Substance: EMTRICITABINE\TENOFOVIR DISOPROXIL FUMARATE
     Indication: HIV INFECTION
  2. NEVIRAPINE. [Concomitant]
     Active Substance: NEVIRAPINE
     Indication: HIV INFECTION
  3. ISENTRESS [Suspect]
     Active Substance: RALTEGRAVIR POTASSIUM
     Indication: HIV INFECTION
     Route: 048
  4. EFAVIRENZ [Suspect]
     Active Substance: EFAVIRENZ
     Indication: HIV INFECTION
     Route: 048
  5. ZIDOVUDINE. [Concomitant]
     Active Substance: ZIDOVUDINE
     Indication: HIV INFECTION
     Route: 042

REACTIONS (6)
  - Premature delivery [Unknown]
  - Caesarean section [Unknown]
  - Live birth [Unknown]
  - Premature rupture of membranes [Unknown]
  - Maternal exposure during pregnancy [Recovered/Resolved]
  - Uterine leiomyoma [Unknown]
